FAERS Safety Report 7974505-0 (Version None)
Quarter: 2011Q4

REPORT INFORMATION
  Report Type: 
  Country: None (occurrence: None)
  Receive Date: 20111213
  Receipt Date: 20111209
  Transmission Date: 20120403
  Serious: Yes (Death)
  Sender: FDA-Public Use
  Company Number: US-ABBOTT-11P-163-0882028-00

PATIENT
  Sex: Female
  Weight: 131.66 kg

DRUGS (4)
  1. LUPRON DEPOT [Suspect]
     Indication: DIALYSIS
  2. LUPRON DEPOT [Suspect]
     Indication: HAEMORRHAGE
     Dates: start: 20100902
  3. LUPRON DEPOT [Suspect]
     Indication: ANAEMIA
  4. LUPRON DEPOT [Suspect]

REACTIONS (2)
  - OFF LABEL USE [None]
  - DEATH [None]
